FAERS Safety Report 19123736 (Version 1)
Quarter: 2021Q2

REPORT INFORMATION
  Report Type: Spontaneous
  Country: US (occurrence: US)
  Receive Date: 20210412
  Receipt Date: 20210412
  Transmission Date: 20210717
  Serious: No
  Sender: FDA-Public Use
  Company Number: US-BAYER-2021-114063

PATIENT
  Sex: Female

DRUGS (1)
  1. CLARITIN [Suspect]
     Active Substance: LORATADINE
     Dosage: NOT AVAILABLE
     Route: 048

REACTIONS (3)
  - Feeding disorder [Recovered/Resolved]
  - Pain [Recovered/Resolved]
  - Oral pain [Recovered/Resolved]
